FAERS Safety Report 8586962 (Version 2)
Quarter: 2013Q2

REPORT INFORMATION
  Report Type: Spontaneous
  Country: US (occurrence: US)
  Receive Date: 20120530
  Receipt Date: 20130617
  Transmission Date: 20140414
  Serious: No
  Sender: FDA-Public Use
  Company Number: US-ASTRAZENECA-2012SE31459

PATIENT
  Age: 52 Year
  Sex: Male

DRUGS (26)
  1. SEROQUEL [Suspect]
     Indication: BIPOLAR DISORDER
     Route: 048
     Dates: start: 200805, end: 200908
  2. SEROQUEL [Suspect]
     Indication: DEPRESSION
     Route: 048
     Dates: start: 200805, end: 200908
  3. SEROQUEL [Suspect]
     Indication: BIPOLAR DISORDER
     Route: 048
     Dates: start: 200908, end: 201002
  4. SEROQUEL [Suspect]
     Indication: DEPRESSION
     Route: 048
     Dates: start: 200908, end: 201002
  5. SEROQUEL [Suspect]
     Indication: BIPOLAR DISORDER
     Route: 048
     Dates: start: 201002, end: 20100302
  6. SEROQUEL [Suspect]
     Indication: DEPRESSION
     Route: 048
     Dates: start: 201002, end: 20100302
  7. METOPROLOL [Suspect]
     Indication: HYPERTENSION
     Route: 065
  8. LEXAPRO [Suspect]
     Indication: DEPRESSION
     Route: 048
     Dates: start: 200806, end: 201107
  9. LEXAPRO [Suspect]
     Indication: OBSESSIVE-COMPULSIVE DISORDER
     Route: 048
     Dates: start: 200806, end: 201107
  10. LEXAPRO [Suspect]
     Indication: DEPRESSION
     Route: 048
     Dates: start: 201107
  11. LEXAPRO [Suspect]
     Indication: OBSESSIVE-COMPULSIVE DISORDER
     Route: 048
     Dates: start: 201107
  12. LEXAPRO [Suspect]
     Indication: DEPRESSION
     Route: 048
  13. LEXAPRO [Suspect]
     Indication: OBSESSIVE-COMPULSIVE DISORDER
     Route: 048
  14. LEXAPRO [Suspect]
     Indication: DEPRESSION
     Route: 048
     Dates: start: 201112
  15. LEXAPRO [Suspect]
     Indication: OBSESSIVE-COMPULSIVE DISORDER
     Route: 048
     Dates: start: 201112
  16. LEXAPRO [Suspect]
     Indication: DEPRESSION
     Route: 048
  17. LEXAPRO [Suspect]
     Indication: OBSESSIVE-COMPULSIVE DISORDER
     Route: 048
  18. LEXAPRO [Suspect]
     Indication: OBSESSIVE-COMPULSIVE DISORDER
     Route: 048
     Dates: start: 201204
  19. DEPAKOTE [Suspect]
     Indication: DEPRESSION
     Route: 048
     Dates: start: 200801, end: 20080402
  20. DEPAKOTE [Suspect]
     Indication: BIPOLAR DISORDER
     Route: 048
     Dates: start: 200801, end: 20080402
  21. DEPAKOTE [Suspect]
     Indication: DEPRESSION
     Route: 048
     Dates: start: 20100403, end: 20100415
  22. DEPAKOTE [Suspect]
     Indication: BIPOLAR DISORDER
     Route: 048
     Dates: start: 20100403, end: 20100415
  23. DEPAKOTE [Suspect]
     Indication: DEPRESSION
     Route: 048
  24. DEPAKOTE [Suspect]
     Indication: BIPOLAR DISORDER
     Route: 048
  25. SYNTHROID [Concomitant]
     Indication: HYPOTHYROIDISM
     Route: 048
  26. CLOMIPRAMINE [Concomitant]
     Indication: OBSESSIVE-COMPULSIVE DISORDER
     Dates: start: 2012

REACTIONS (6)
  - Trismus [Recovered/Resolved]
  - Hypothyroidism [Unknown]
  - Renal impairment [Unknown]
  - Hypertension [Unknown]
  - Somnolence [Recovered/Resolved]
  - Fatigue [Unknown]
